FAERS Safety Report 4299003-X (Version None)
Quarter: 2004Q1

REPORT INFORMATION
  Report Type: 
  Country: None (occurrence: None)
  Receive Date: 20040217
  Receipt Date: 20040202
  Transmission Date: 20041129
  Serious: Yes (Death, Other)
  Sender: FDA-Public Use
  Company Number: 002-0981-M0000242

PATIENT
  Age: 61 Year
  Sex: Male
  Weight: 102 kg

DRUGS (4)
  1. ATORVASTATIN CALCIUM [Suspect]
     Indication: CORONARY ARTERY DISEASE
     Dosage: SEE IMAGE
     Route: 048
     Dates: start: 19990713, end: 19990913
  2. ATORVASTATIN CALCIUM [Suspect]
     Indication: CORONARY ARTERY DISEASE
     Dosage: SEE IMAGE
     Route: 048
     Dates: start: 19990914
  3. METOPROLOL (METOPROLOL) [Concomitant]
  4. ACETYLSALICYLIC ACID SRT [Concomitant]

REACTIONS (5)
  - ANGINA UNSTABLE [None]
  - CHOROID MELANOMA [None]
  - GASTROOESOPHAGEAL REFLUX DISEASE [None]
  - METASTASES TO LIVER [None]
  - METASTASES TO LUNG [None]
